FAERS Safety Report 6979639-5 (Version None)
Quarter: 2010Q3

REPORT INFORMATION
  Report Type: 
  Country: None (occurrence: None)
  Receive Date: 20100910
  Receipt Date: 20100910
  Transmission Date: 20110219
  Serious: Yes (Life-Threatening)
  Sender: FDA-Public Use
  Company Number: None

PATIENT
  Age: 32 Year
  Sex: Male
  Weight: 85 kg

DRUGS (1)
  1. DROTRECOGIN ALFA [Suspect]
     Indication: SEPSIS
     Dosage: CONTINUOUS INFUSIO IV DRIP
     Route: 041
     Dates: start: 20100831, end: 20100903

REACTIONS (5)
  - GASTROINTESTINAL HAEMORRHAGE [None]
  - HAEMORRHAGE URINARY TRACT [None]
  - HYPOXIA [None]
  - THROMBOSIS [None]
  - TRACHEAL HAEMORRHAGE [None]
